FAERS Safety Report 6580734-3 (Version None)
Quarter: 2010Q1

REPORT INFORMATION
  Report Type: 
  Country: None (occurrence: None)
  Receive Date: 20100212
  Receipt Date: 20100202
  Transmission Date: 20100710
  Serious: Yes (Hospitalization, Other)
  Sender: FDA-Public Use
  Company Number: US-JNJFOC-20090608650

PATIENT
  Sex: Female

DRUGS (3)
  1. REMICADE [Suspect]
     Indication: RHEUMATOID ARTHRITIS
     Route: 042
  2. VANCOMYCIN [Suspect]
     Indication: INFECTION
     Route: 042
     Dates: start: 20090501
  3. VANCOMYCIN [Suspect]
     Route: 042
     Dates: start: 20090501

REACTIONS (10)
  - ABSCESS [None]
  - CALCINOSIS [None]
  - CELLULITIS [None]
  - ELECTROCARDIOGRAM T WAVE ABNORMAL [None]
  - IMPAIRED HEALING [None]
  - PANNICULITIS [None]
  - PULMONARY FIBROSIS [None]
  - RED MAN SYNDROME [None]
  - SKIN ULCER [None]
  - STAPHYLOCOCCAL INFECTION [None]
